FAERS Safety Report 18050279 (Version 1)
Quarter: 2020Q3

REPORT INFORMATION
  Report Type: Spontaneous
  Country: US (occurrence: US)
  Receive Date: 20200721
  Receipt Date: 20200721
  Transmission Date: 20201103
  Serious: No
  Sender: FDA-Public Use
  Company Number: US-ANTARES PHARMA, INC.-2020-SPO-TX-0144

PATIENT
  Age: 64 Year
  Sex: Male

DRUGS (3)
  1. XYOSTED [Suspect]
     Active Substance: TESTOSTERONE ENANTHATE
     Indication: COGNITIVE DISORDER
     Dosage: 100 MG/0.5ML, QWK
     Route: 058
     Dates: start: 2019
  2. XYOSTED [Suspect]
     Active Substance: TESTOSTERONE ENANTHATE
     Indication: PRODUCT USE IN UNAPPROVED INDICATION
  3. XYOSTED [Suspect]
     Active Substance: TESTOSTERONE ENANTHATE
     Indication: BLOOD TESTOSTERONE DECREASED
     Dosage: 75 MG/0.5ML, BIW
     Route: 058
     Dates: start: 202003

REACTIONS (3)
  - Product use in unapproved indication [Unknown]
  - Product use issue [Unknown]
  - Drug ineffective [Unknown]

NARRATIVE: CASE EVENT DATE: 202003
